FAERS Safety Report 22081560 (Version 3)
Quarter: 2023Q2

REPORT INFORMATION
  Report Type: Spontaneous
  Country: BR (occurrence: BR)
  Receive Date: 20230310
  Receipt Date: 20230606
  Transmission Date: 20230721
  Serious: Yes (Other)
  Sender: FDA-Public Use
  Company Number: BR-SA-SAC20230306000856

PATIENT
  Age: 33 Year
  Sex: Female

DRUGS (4)
  1. ENOXAPARIN SODIUM [Suspect]
     Active Substance: ENOXAPARIN SODIUM
     Indication: Thrombosis
     Dosage: UNK
     Route: 065
  2. ENOXAPARIN SODIUM [Suspect]
     Active Substance: ENOXAPARIN SODIUM
     Dosage: 60 MG
     Route: 065
  3. CELESTONE SOLUSPAN [Concomitant]
     Active Substance: BETAMETHASONE ACETATE\BETAMETHASONE SODIUM PHOSPHATE
     Dosage: UNK
  4. ALDOMET [Concomitant]
     Active Substance: METHYLDOPA
     Dosage: UNK

REACTIONS (5)
  - Placental insufficiency [Unknown]
  - Hypercoagulation [Unknown]
  - Ultrasound Doppler abnormal [Unknown]
  - Blood pressure increased [Unknown]
  - Exposure during pregnancy [Unknown]
